FAERS Safety Report 25351493 (Version 2)
Quarter: 2025Q2

REPORT INFORMATION
  Report Type: Spontaneous
  Country: JP (occurrence: JP)
  Receive Date: 20250523
  Receipt Date: 20250602
  Transmission Date: 20250716
  Serious: Yes (Death, Life-Threatening, Hospitalization)
  Sender: NOVARTIS
  Company Number: JP-PFIZER INC-PV202500003125

PATIENT
  Age: 77 Year
  Sex: Female
  Weight: 150 kg

DRUGS (4)
  1. METHOTREXATE [Suspect]
     Active Substance: METHOTREXATE
     Indication: Still^s disease
     Dosage: 12 MG, QW (ADJUSTED CONSIDERING AOSD RELAPSE)
     Route: 065
     Dates: start: 201805, end: 2018
  2. CYCLOSPORINE [Suspect]
     Active Substance: CYCLOSPORINE
     Indication: Still^s disease
     Dosage: 250 MG, QD
     Route: 065
     Dates: start: 201806, end: 2018
  3. PREDNISOLONE [Suspect]
     Active Substance: PREDNISOLONE
     Indication: Still^s disease
     Dosage: 50 MG, QD (STARTED WITH HIGH DOSES AND TAPERED PREDNISOLONE AFTER REMISSION AND ADJUSTED CONSIDERING
     Route: 065
     Dates: start: 201805
  4. TOCILIZUMAB [Suspect]
     Active Substance: TOCILIZUMAB
     Indication: Still^s disease
     Dosage: 162 MG, QW (ADJUSTED CONSIDERING AOSD RELAPSE)
     Route: 065
     Dates: start: 201806, end: 2018

REACTIONS (3)
  - Central nervous system lymphoma [Fatal]
  - Diffuse large B-cell lymphoma [Fatal]
  - Epstein-Barr virus infection reactivation [Fatal]

NARRATIVE: CASE EVENT DATE: 20180801
